FAERS Safety Report 12252146 (Version 2)
Quarter: 2016Q2

REPORT INFORMATION
  Report Type: Report from Study
  Country: BR (occurrence: BR)
  Receive Date: 20160411
  Receipt Date: 20160422
  Transmission Date: 20160815
  Serious: Yes (Other)
  Sender: FDA-Public Use
  Company Number: BR-ROCHE-1636791

PATIENT
  Sex: Female
  Weight: 63 kg

DRUGS (7)
  1. PRELONE [Concomitant]
     Active Substance: PREDNISOLONE
     Dosage: 6 MG
     Route: 065
  2. DEPURA [Concomitant]
     Active Substance: CHOLECALCIFEROL
     Route: 065
  3. BENICAR [Concomitant]
     Active Substance: OLMESARTAN MEDOXOMIL
  4. ARAVA [Concomitant]
     Active Substance: LEFLUNOMIDE
  5. OSTEONUTRI [Concomitant]
     Route: 065
  6. ACTEMRA [Suspect]
     Active Substance: TOCILIZUMAB
     Route: 042
     Dates: start: 20151201
  7. ACTEMRA [Suspect]
     Active Substance: TOCILIZUMAB
     Indication: RHEUMATOID ARTHRITIS
     Route: 042
     Dates: start: 20150409

REACTIONS (5)
  - Skin ulcer [Not Recovered/Not Resolved]
  - Immunodeficiency [Unknown]
  - Flavivirus infection [Unknown]
  - Lymphangitis [Unknown]
  - Skin fissures [Unknown]
